FAERS Safety Report 9057257 (Version 1)
Quarter: 2013Q1

REPORT INFORMATION
  Report Type: Report from Study
  Country: JP (occurrence: JP)
  Receive Date: 20130131
  Receipt Date: 20130131
  Transmission Date: 20140127
  Serious: Yes (Other)
  Sender: FDA-Public Use
  Company Number: JP-GLAXOSMITHKLINE-B0859887A

PATIENT
  Age: 41 None
  Sex: Female
  Weight: 44 kg

DRUGS (15)
  1. TYKERB [Suspect]
     Indication: BREAST CANCER
     Route: 048
     Dates: start: 20090813, end: 20091022
  2. TYKERB [Suspect]
     Indication: BREAST CANCER
     Route: 048
     Dates: start: 20091118, end: 20091209
  3. TYKERB [Suspect]
     Indication: BREAST CANCER
     Route: 048
     Dates: start: 20091210, end: 20100114
  4. XELODA [Suspect]
     Route: 048
     Dates: start: 20090813, end: 20091022
  5. DEPAKENE-R [Concomitant]
     Indication: CONVULSION
     Route: 048
     Dates: start: 20090812, end: 20100106
  6. FUROSEMIDE [Concomitant]
     Indication: OEDEMA
     Route: 048
     Dates: start: 20090813, end: 20090819
  7. ALDACTONE A [Concomitant]
     Indication: OEDEMA
     Route: 048
     Dates: start: 20090813, end: 20090819
  8. LOXONIN [Concomitant]
     Indication: BACK PAIN
     Route: 048
     Dates: start: 20090813, end: 20090819
  9. MUCOSTA [Concomitant]
     Indication: GASTRITIS
     Route: 048
     Dates: start: 20090813, end: 20090819
  10. TAKEPRON [Concomitant]
     Indication: GASTRITIS
     Route: 048
     Dates: start: 20090813, end: 20090902
  11. PROMAC [Concomitant]
     Indication: GASTRITIS
     Route: 048
     Dates: start: 20090819, end: 20100106
  12. ETODOLAC [Concomitant]
     Indication: BACK PAIN
     Route: 048
     Dates: start: 20090820, end: 20100106
  13. GASTER D [Concomitant]
     Indication: ABDOMINAL PAIN UPPER
     Route: 048
     Dates: start: 20090903, end: 20100101
  14. MORPHINE HYDROCHLORIDE [Concomitant]
     Indication: CANCER PAIN
     Route: 048
     Dates: start: 20090923, end: 20100108
  15. OXYCONTIN [Concomitant]
     Indication: CANCER PAIN
     Route: 048
     Dates: start: 20091028, end: 20091031

REACTIONS (3)
  - Pancytopenia [Recovered/Resolved]
  - Diarrhoea [Recovered/Resolved]
  - Liver disorder [Recovered/Resolved]
